FAERS Safety Report 7212166-9 (Version None)
Quarter: 2010Q4

REPORT INFORMATION
  Report Type: 
  Country: None (occurrence: None)
  Receive Date: 20101227
  Receipt Date: 20101215
  Transmission Date: 20110411
  Serious: Yes (Hospitalization)
  Sender: FDA-Public Use
  Company Number: 782955

PATIENT
  Age: 41 Year
  Sex: Male
  Weight: 80 kg

DRUGS (10)
  1. ATROPINE SULFATE [Suspect]
     Indication: SINUS BRADYCARDIA
     Dosage: .4 MG MILLIGRAM(S), INTRAVENOUS
     Route: 042
  2. (EPHEDRINE SULFATE) [Suspect]
     Indication: SINUS BRADYCARDIA
     Dosage: 20 MG MILLIGRAM(S), INTRAVENOUS, 10 MG TWICE, INTRAVENOUS
     Route: 042
  3. PROPOFOL [Concomitant]
  4. FENTANYL CITRATE [Concomitant]
  5. (CISATRACURIUM) [Concomitant]
  6. SEVOFLURANE [Concomitant]
  7. (OXYGEN) [Concomitant]
  8. RINGER'S [Concomitant]
  9. (NEOSTIGMINE) [Concomitant]
  10. 9GLYCOPYRROLATE /00196202/) [Concomitant]

REACTIONS (5)
  - ACUTE CORONARY SYNDROME [None]
  - ARTERIOSPASM CORONARY [None]
  - MYOCARDIAL INFARCTION [None]
  - MYOCARDIAL ISCHAEMIA [None]
  - PULMONARY OEDEMA [None]
